FAERS Safety Report 4549113-4 (Version None)
Quarter: 2005Q1

REPORT INFORMATION
  Report Type: 
  Country: None (occurrence: None)
  Receive Date: 20050110
  Receipt Date: 20040816
  Transmission Date: 20050727
  Serious: Yes (Other)
  Sender: FDA-Public Use
  Company Number: PHBS2004BR10729

PATIENT
  Age: 6 Year
  Sex: Male
  Weight: 26 kg

DRUGS (5)
  1. TEGRETOL [Concomitant]
     Indication: ENCEPHALITIS
     Dosage: 200 MG, BID
     Route: 048
     Dates: start: 20041101
  2. TEGRETOL [Concomitant]
     Dosage: 15 ML/D
     Route: 048
     Dates: start: 20040315
  3. RITALINA [Suspect]
     Indication: PSYCHOMOTOR HYPERACTIVITY
     Dosage: 1 DF, QD
     Route: 048
  4. RITALINA [Suspect]
     Dosage: 2 DF/DAY
     Route: 048
  5. RITALINA [Suspect]
     Dosage: 0.5 DF, QD
     Route: 048
     Dates: start: 20040730

REACTIONS (5)
  - CONVULSION [None]
  - IMMUNE SYSTEM DISORDER [None]
  - PHARYNGITIS [None]
  - PNEUMONIA [None]
  - PYREXIA [None]
